FAERS Safety Report 25959995 (Version 1)
Quarter: 2025Q4

REPORT INFORMATION
  Report Type: Spontaneous
  Country: US (occurrence: US)
  Receive Date: 20251026
  Receipt Date: 20251026
  Transmission Date: 20260117
  Serious: No
  Sender: SANOFI AVENTIS
  Company Number: US-SA-2025SA314227

PATIENT
  Age: 10 Year

DRUGS (1)
  1. TZIELD [Suspect]
     Active Substance: TEPLIZUMAB-MZWV
     Dosage: UNK
     Dates: start: 20251015, end: 20251020

REACTIONS (2)
  - Alanine aminotransferase increased [Unknown]
  - Aspartate aminotransferase increased [Unknown]

NARRATIVE: CASE EVENT DATE: 20251019
